FAERS Safety Report 10626408 (Version 1)
Quarter: 2014Q4

REPORT INFORMATION
  Report Type: Spontaneous
  Country: US (occurrence: US)
  Receive Date: 20141204
  Receipt Date: 20141204
  Transmission Date: 20150529
  Serious: Yes (Other)
  Sender: FDA-Public Use
  Company Number: US-TEVA-526820USA

PATIENT
  Age: 19 Year
  Sex: Female
  Weight: 77.18 kg

DRUGS (2)
  1. PARAGARD T380A [Suspect]
     Active Substance: COPPER
     Dates: start: 20141124, end: 20141202
  2. PARAGARD T380A [Suspect]
     Active Substance: COPPER
     Indication: CONTRACEPTION
     Route: 015
     Dates: start: 20141103, end: 20141124

REACTIONS (4)
  - Device dislocation [Recovered/Resolved]
  - Vulvovaginal pain [Not Recovered/Not Resolved]
  - Dyspareunia [Unknown]
  - Pelvic pain [Not Recovered/Not Resolved]

NARRATIVE: CASE EVENT DATE: 20141124
